FAERS Safety Report 24018130 (Version 1)
Quarter: 2024Q2

REPORT INFORMATION
  Report Type: Spontaneous
  Country: US (occurrence: US)
  Receive Date: 20240627
  Receipt Date: 20240627
  Transmission Date: 20240716
  Serious: No
  Sender: FDA-Public Use
  Company Number: US-TAKEDA-2024TUS063880

PATIENT

DRUGS (1)
  1. ADDERALL XR [Suspect]
     Active Substance: AMPHETAMINE ASPARTATE\AMPHETAMINE SULFATE\DEXTROAMPHETAMINE SACCHARATE\DEXTROAMPHETAMINE SULFATE
     Indication: Attention deficit hyperactivity disorder
     Dosage: UNK
     Route: 065

REACTIONS (12)
  - Brain fog [Unknown]
  - Impaired work ability [Unknown]
  - Muscle tightness [Unknown]
  - Loss of personal independence in daily activities [Unknown]
  - Disturbance in attention [Unknown]
  - Thirst [Unknown]
  - Drug ineffective [Unknown]
  - Dry mouth [Unknown]
  - Anxiety [Unknown]
  - Confusional state [Unknown]
  - Product availability issue [Unknown]
  - Product quality issue [Unknown]
